FAERS Safety Report 16709617 (Version 2)
Quarter: 2019Q3

REPORT INFORMATION
  Report Type: Other
  Country: CH (occurrence: GB)
  Receive Date: 20190816
  Receipt Date: 20190917
  Transmission Date: 20191004
  Serious: Yes (Death, Other)
  Sender: FDA-Public Use
  Company Number: GB-ASTELLAS-2019US032865

PATIENT
  Age: 14 Year
  Sex: Male

DRUGS (19)
  1. AMPHOTERICIN B, LIPOSOME [Suspect]
     Active Substance: AMPHOTERICIN B
     Route: 065
  2. TIGECYCLINE. [Suspect]
     Active Substance: TIGECYCLINE
     Indication: KLEBSIELLA BACTERAEMIA
     Dosage: UNK UNK, UNKNOWN FREQ.
     Route: 065
  3. COLISTIN [Suspect]
     Active Substance: COLISTIN
     Indication: PROTEUS INFECTION
  4. COLISTIN [Suspect]
     Active Substance: COLISTIN
     Indication: ACINETOBACTER BACTERAEMIA
  5. TIGECYCLINE. [Suspect]
     Active Substance: TIGECYCLINE
     Indication: PROTEUS INFECTION
  6. COLISTIN [Suspect]
     Active Substance: COLISTIN
     Indication: ENTEROBACTER INFECTION
  7. AMIKACIN. [Suspect]
     Active Substance: AMIKACIN
     Indication: KLEBSIELLA BACTERAEMIA
     Dosage: UNK UNK, UNKNOWN FREQ.
     Route: 065
  8. AMIKACIN. [Suspect]
     Active Substance: AMIKACIN
     Indication: PROTEUS INFECTION
  9. COLISTIN [Suspect]
     Active Substance: COLISTIN
     Indication: ESCHERICHIA INFECTION
  10. TIGECYCLINE. [Suspect]
     Active Substance: TIGECYCLINE
     Indication: ENTEROBACTER INFECTION
  11. TIGECYCLINE. [Suspect]
     Active Substance: TIGECYCLINE
     Indication: ACINETOBACTER BACTERAEMIA
  12. AMPHOTERICIN B, LIPOSOME [Suspect]
     Active Substance: AMPHOTERICIN B
     Indication: FUNGAL INFECTION
     Route: 065
  13. AMIKACIN. [Suspect]
     Active Substance: AMIKACIN
     Indication: ESCHERICHIA INFECTION
  14. AMIKACIN. [Suspect]
     Active Substance: AMIKACIN
     Indication: ACINETOBACTER BACTERAEMIA
  15. ISAVUCONAZOLE [Suspect]
     Active Substance: ISAVUCONAZOLE
     Indication: ASPERGILLUS INFECTION
  16. COLISTIN [Suspect]
     Active Substance: COLISTIN
     Indication: KLEBSIELLA BACTERAEMIA
     Dosage: UNK UNK, UNKNOWN FREQ.
     Route: 065
  17. ISAVUCONAZOLE [Suspect]
     Active Substance: ISAVUCONAZOLE
     Indication: MUCORMYCOSIS
     Dosage: UNK MG, UNKNOWN FREQ.
     Route: 065
  18. AMIKACIN. [Suspect]
     Active Substance: AMIKACIN
     Indication: ENTEROBACTER INFECTION
  19. TIGECYCLINE. [Suspect]
     Active Substance: TIGECYCLINE
     Indication: ESCHERICHIA INFECTION

REACTIONS (2)
  - Product use issue [Unknown]
  - Death [Fatal]
